FAERS Safety Report 20315882 (Version 1)
Quarter: 2022Q1

REPORT INFORMATION
  Report Type: Spontaneous
  Country: US (occurrence: None)
  Receive Date: 20220110
  Receipt Date: 20220110
  Transmission Date: 20220423
  Serious: No
  Sender: FDA-Public Use
  Company Number: US-ROCHE-2903014

PATIENT
  Age: 75 Year
  Sex: Male

DRUGS (1)
  1. RITUXAN [Suspect]
     Active Substance: RITUXIMAB
     Indication: Pemphigus
     Route: 042

REACTIONS (3)
  - Drug ineffective [Unknown]
  - Skin lesion [Unknown]
  - Pemphigus [Unknown]
